FAERS Safety Report 9552669 (Version 2)
Quarter: 2013Q3

REPORT INFORMATION
  Report Type: Spontaneous
  Country: US (occurrence: US)
  Receive Date: 20130925
  Receipt Date: 20130925
  Transmission Date: 20140515
  Serious: Yes (Hospitalization)
  Sender: FDA-Public Use
  Company Number: US-NAPPMUNDI-USA-2012-0089425

PATIENT
  Age: 58 Year
  Sex: Male
  Weight: 92.97 kg

DRUGS (1)
  1. MS CONTIN TABLETS [Suspect]
     Indication: PAIN MANAGEMENT
     Dosage: 60 MG, UNK

REACTIONS (1)
  - Poverty [Unknown]
